FAERS Safety Report 6764841-8 (Version None)
Quarter: 2010Q2

REPORT INFORMATION
  Report Type: 
  Country: None (occurrence: None)
  Receive Date: 20100610
  Receipt Date: 20100602
  Transmission Date: 20101027
  Serious: Yes (Other)
  Sender: FDA-Public Use
  Company Number: US-JNJCH-2010013596

PATIENT
  Age: 47 Year
  Sex: Female
  Weight: 54.4 kg

DRUGS (2)
  1. LISTERINE WHITENING QUICK DISSOLVING STRIPS [Suspect]
     Indication: DENTAL CARE
     Dosage: TEXT:1 STRIP ON LOWER AND UPPER TEETH 2X DAY
     Route: 048
     Dates: start: 20100529, end: 20100531
  2. ORTHO-NOVUM [Concomitant]
     Indication: CONTRACEPTION
     Dosage: TEXT:1X DAILY
     Route: 065

REACTIONS (3)
  - APPLICATION SITE BURN [None]
  - GINGIVAL DISCOLOURATION [None]
  - PRODUCT QUALITY ISSUE [None]
